FAERS Safety Report 8957227 (Version 3)
Quarter: 2013Q1

REPORT INFORMATION
  Report Type: Spontaneous
  Country: US (occurrence: US)
  Receive Date: 20121211
  Receipt Date: 20130129
  Transmission Date: 20140127
  Serious: Yes (Hospitalization)
  Sender: FDA-Public Use
  Company Number: US-BAYER-2012-127889

PATIENT
  Age: 41 Year
  Sex: Female
  Weight: 88.44 kg

DRUGS (9)
  1. YASMIN [Suspect]
     Dosage: UNK
     Dates: start: 1999, end: 2006
  2. ZOLOFT [Concomitant]
     Indication: DEPRESSION
     Dosage: 50 MG, DAILY
     Route: 048
  3. SYNTHROID [Concomitant]
     Indication: HYPOTHYROIDISM
     Dosage: 50 ?G, DAILY
  4. ASPIRIN [Concomitant]
     Dosage: 81 MG, DAILY
     Route: 048
  5. MULTIVITAMIN [Concomitant]
  6. NAPROSYN [Concomitant]
  7. WELLBUTRIN [Concomitant]
     Indication: DEPRESSION
     Dosage: UNK
     Dates: start: 2003
  8. L-THYROXINE [Concomitant]
     Indication: HYPOTHYROIDISM
     Dosage: UNK
     Dates: start: 2003
  9. SIMVASTATIN [Concomitant]
     Indication: BLOOD CHOLESTEROL INCREASED
     Dosage: UNK
     Dates: start: 2003

REACTIONS (11)
  - Deep vein thrombosis [None]
  - Pelvic venous thrombosis [None]
  - Deep vein thrombosis [None]
  - Thrombophlebitis superficial [None]
  - Pain [None]
  - Injury [None]
  - General physical health deterioration [None]
  - Anxiety [None]
  - Anhedonia [None]
  - Emotional distress [None]
  - Pain [None]
